FAERS Safety Report 7605484-3 (Version None)
Quarter: 2011Q3

REPORT INFORMATION
  Report Type: 
  Country: None (occurrence: None)
  Receive Date: 20110713
  Receipt Date: 20110708
  Transmission Date: 20111222
  Serious: No
  Sender: FDA-Public Use
  Company Number: US-PFIZER INC-2011154788

PATIENT
  Sex: Female
  Weight: 64.853 kg

DRUGS (5)
  1. NEFAZODONE [Concomitant]
     Indication: MUSCLE TIGHTNESS
  2. BUSPIRONE [Concomitant]
     Indication: MUSCLE TIGHTNESS
  3. GENOTROPIN [Suspect]
     Indication: GROWTH HORMONE DEFICIENCY
     Dosage: 0.2 MG, DAILY
     Dates: start: 20110601
  4. BUSPIRONE [Concomitant]
     Indication: DIZZINESS
     Dosage: 30 MG, 2X/DAY
     Route: 048
  5. NEFAZODONE [Concomitant]
     Indication: DIZZINESS
     Dosage: 100MG HALF A TABLET
     Route: 048

REACTIONS (2)
  - DRUG INEFFECTIVE [None]
  - OEDEMA PERIPHERAL [None]
